FAERS Safety Report 15784491 (Version 1)
Quarter: 2019Q1

REPORT INFORMATION
  Report Type: Spontaneous
  Country: JP (occurrence: JP)
  Receive Date: 20190103
  Receipt Date: 20190103
  Transmission Date: 20190417
  Serious: Yes (Death, Hospitalization, Disabling, Other)
  Sender: FDA-Public Use
  Company Number: JP-ACCORD-098936

PATIENT
  Age: 9 Year
  Sex: Male

DRUGS (2)
  1. ETOPOSIDE. [Suspect]
     Active Substance: ETOPOSIDE
     Indication: ANAPLASTIC ASTROCYTOMA
  2. CYCLOPHOSPHAMIDE/CYCLOPHOSPHAMIDE MONOHYDRATE [Suspect]
     Active Substance: CYCLOPHOSPHAMIDE
     Indication: ANAPLASTIC ASTROCYTOMA

REACTIONS (4)
  - Anaplastic astrocytoma [Fatal]
  - Osteosarcoma metastatic [Fatal]
  - Neoplasm recurrence [Fatal]
  - Metastases to lung [Fatal]

NARRATIVE: CASE EVENT DATE: 2010
